FAERS Safety Report 12996117 (Version 2)
Quarter: 2016Q4

REPORT INFORMATION
  Report Type: Spontaneous
  Country: CN (occurrence: CN)
  Receive Date: 20161202
  Receipt Date: 20161214
  Transmission Date: 20170207
  Serious: Yes (Hospitalization)
  Sender: FDA-Public Use
  Company Number: CN-ASTRAZENECA-2016SF24023

PATIENT
  Age: 19328 Day
  Sex: Male

DRUGS (5)
  1. CRESTOR [Suspect]
     Active Substance: ROSUVASTATIN CALCIUM
     Route: 048
  2. ISOSORBIDE MONONITRATE. [Concomitant]
     Active Substance: ISOSORBIDE MONONITRATE
     Route: 048
     Dates: start: 20161104
  3. LANSOPRAZOLE. [Concomitant]
     Active Substance: LANSOPRAZOLE
     Dates: start: 20161104
  4. BAYASPIRIN [Concomitant]
     Active Substance: ASPIRIN
  5. BRILINTA [Suspect]
     Active Substance: TICAGRELOR
     Dosage: LOADING DOSE OF 180 MG BID
     Route: 048
     Dates: start: 20161104, end: 20161114

REACTIONS (7)
  - Hypertension [Unknown]
  - Acute myocardial infarction [Unknown]
  - Marasmus [Unknown]
  - Peripheral swelling [Unknown]
  - Hyperlipidaemia [Unknown]
  - Tachycardia [Unknown]
  - Pain in extremity [Unknown]

NARRATIVE: CASE EVENT DATE: 20161107
